FAERS Safety Report 13214018 (Version 1)
Quarter: 2017Q1

REPORT INFORMATION
  Report Type: Spontaneous
  Country: US (occurrence: US)
  Receive Date: 20170210
  Receipt Date: 20170210
  Transmission Date: 20170428
  Serious: No
  Sender: FDA-Public Use
  Company Number: US-INCYTE CORPORATION-2017IN000650

PATIENT
  Sex: Female

DRUGS (3)
  1. ASPIRIN                            /00002701/ [Concomitant]
     Active Substance: ASPIRIN
     Indication: PRODUCT USED FOR UNKNOWN INDICATION
  2. JAKAFI [Suspect]
     Active Substance: RUXOLITINIB
     Dosage: 10 MG, QAM, 5 MG QPM
     Route: 048
  3. ANAGRELIDE [Concomitant]
     Active Substance: ANAGRELIDE
     Indication: PRODUCT USED FOR UNKNOWN INDICATION

REACTIONS (4)
  - Anxiety [Unknown]
  - Nausea [Unknown]
  - Nervousness [Unknown]
  - Vertigo [Unknown]
